FAERS Safety Report 6135627-2 (Version None)
Quarter: 2009Q1

REPORT INFORMATION
  Report Type: 
  Country: None (occurrence: None)
  Receive Date: 20090327
  Receipt Date: 20080228
  Transmission Date: 20090719
  Serious: No
  Sender: FDA-Public Use
  Company Number: US-ASTRAZENECA-2008UW04116

PATIENT
  Age: 55 Year
  Sex: Male

DRUGS (6)
  1. ZESTRIL [Suspect]
     Indication: HYPERTENSION
     Route: 048
  2. ZESTRIL [Suspect]
     Route: 048
     Dates: start: 20080107, end: 20080115
  3. ZESTRIL [Suspect]
     Route: 048
     Dates: start: 20080101
  4. METFORMIN [Concomitant]
     Dates: start: 20080107, end: 20080101
  5. METFORMIN [Concomitant]
     Dates: start: 20080101
  6. GLYBURIDE [Concomitant]

REACTIONS (3)
  - HEADACHE [None]
  - MUSCULOSKELETAL DISCOMFORT [None]
  - PRODUCT QUALITY ISSUE [None]
